FAERS Safety Report 12874617 (Version 10)
Quarter: 2017Q4

REPORT INFORMATION
  Report Type: Spontaneous
  Country: GB (occurrence: GB)
  Receive Date: 20161021
  Receipt Date: 20171115
  Transmission Date: 20180320
  Serious: Yes (Hospitalization, Other)
  Sender: FDA-Public Use
  Company Number: GB-009507513-1610GBR011659

PATIENT
  Age: 71 Year
  Sex: Female

DRUGS (27)
  1. TINZAPARIN SODIUM [Concomitant]
     Active Substance: TINZAPARIN SODIUM
     Indication: THROMBOSIS PROPHYLAXIS
     Dosage: 4500 IU, UNKNOWN
     Route: 065
     Dates: start: 20160803
  2. REVLIMID [Suspect]
     Active Substance: LENALIDOMIDE
     Dosage: (10 MG, 1 IN 1 D)
     Route: 048
     Dates: start: 20160817
  3. NYSTATIN. [Concomitant]
     Active Substance: NYSTATIN
     Indication: DYSPHAGIA
     Dosage: 4 ML (1 ML,4 IN 1 D)
     Route: 048
     Dates: start: 20161118, end: 20161125
  4. NYSTATIN. [Concomitant]
     Active Substance: NYSTATIN
     Indication: ORAL PAIN
     Dosage: 4 ML (1 ML,4 IN 1 D)
     Route: 048
     Dates: start: 20160826, end: 20160901
  5. OXYCODONE [Concomitant]
     Active Substance: OXYCODONE
     Indication: ARTHRALGIA
     Dosage: (30 MG, 2 IN 1 D)
     Route: 065
  6. OXYNORM [Concomitant]
     Active Substance: OXYCODONE HYDROCHLORIDE
     Indication: CHEST PAIN
     Dosage: 40 MILLIGRAM  (5 MG)
     Route: 065
  7. OXYNORM [Concomitant]
     Active Substance: OXYCODONE HYDROCHLORIDE
     Indication: ARTHRALGIA
     Dosage: UNK
     Route: 065
  8. ZOLEDRONIC ACID [Concomitant]
     Active Substance: ZOLEDRONIC ACID
     Indication: PROPHYLAXIS
     Dosage: (3.5 MG, 1 IN 1 M)
     Route: 041
     Dates: start: 20160606
  9. DEXAMETHASONE. [Suspect]
     Active Substance: DEXAMETHASONE
     Dosage: (40 MG, 4 IN 28 D) (40 MG, DAYS 1, 8, 15, 22 IN 28 D)
     Route: 048
  10. ZOMETA [Concomitant]
     Active Substance: ZOLEDRONIC ACID
     Indication: PROPHYLAXIS
     Dosage: UNK
     Route: 065
  11. AMLODIPINE [Concomitant]
     Active Substance: AMLODIPINE BESYLATE
     Indication: HYPERTENSION
     Dosage: UNK
     Route: 065
  12. OMEPRAZOLE. [Concomitant]
     Active Substance: OMEPRAZOLE
     Indication: GASTRITIS PROPHYLAXIS
     Dosage: (20 MG,1 IN 1 D)
     Route: 048
     Dates: start: 20160803
  13. ACETAMINOPHEN. [Concomitant]
     Active Substance: ACETAMINOPHEN
     Indication: NON-CARDIAC CHEST PAIN
     Dosage: 4000 MG (1000 MG, 4 IN 1 D)
     Route: 048
     Dates: start: 20160622
  14. OXYCODONE [Concomitant]
     Active Substance: OXYCODONE
     Indication: ARTHRALGIA
     Dosage: UNK
     Route: 065
  15. RAMIPRIL. [Concomitant]
     Active Substance: RAMIPRIL
     Indication: HYPERTENSION
     Dosage: UNK
     Route: 065
  16. ALLOPURINOL. [Concomitant]
     Active Substance: ALLOPURINOL
     Indication: PROPHYLAXIS
     Dosage: 300 MG, 1 IN 1 D
     Route: 048
     Dates: start: 20160803
  17. FLUCONAZOLE. [Concomitant]
     Active Substance: FLUCONAZOLE
     Indication: DYSPHAGIA
     Dosage: 100 MG, (100 MG, 1 IN 1 D)
     Route: 048
     Dates: start: 20160826, end: 20160901
  18. FLUCONAZOLE. [Concomitant]
     Active Substance: FLUCONAZOLE
     Indication: ORAL PAIN
     Dosage: 100 MG, (100 MG, 3 IN 1 D)
     Route: 048
     Dates: start: 20161007, end: 20161014
  19. NYSTATIN. [Concomitant]
     Active Substance: NYSTATIN
     Indication: ORAL CANDIDIASIS
     Dosage: 4 ML (1 ML,4 IN 1 D)
     Route: 048
     Dates: start: 20160907
  20. ACETAMINOPHEN. [Concomitant]
     Active Substance: ACETAMINOPHEN
     Indication: ARTHRALGIA
     Dosage: UNKNOWN
     Route: 065
  21. DEXAMETHASONE. [Suspect]
     Active Substance: DEXAMETHASONE
     Indication: PLASMA CELL MYELOMA
     Dosage: (40 MG, 4 IN 28 D) (40 MG, DAYS 1, 8,15, 22 IN 28 D)
     Route: 048
     Dates: start: 20160803, end: 20160813
  22. REVLIMID [Suspect]
     Active Substance: LENALIDOMIDE
     Indication: PLASMA CELL MYELOMA
     Dosage: (10 MG, 21 IN 28 D)
     Route: 048
     Dates: start: 20160803, end: 20160813
  23. OXYCODONE [Concomitant]
     Active Substance: OXYCODONE
     Indication: CHEST PAIN
     Dosage: UNK
     Route: 065
  24. FLUCONAZOLE. [Concomitant]
     Active Substance: FLUCONAZOLE
     Indication: ORAL CANDIDIASIS
     Dosage: 100 MG, (100 MG, 3 IN 1 D)
     Route: 048
     Dates: start: 20160907
  25. OXYCODONE [Concomitant]
     Active Substance: OXYCODONE
     Indication: NON-CARDIAC CHEST PAIN
     Dosage: 20 MG (10 MG, 2 IN 1D)
     Route: 048
     Dates: start: 20160606
  26. METOCLOPRAMIDE. [Concomitant]
     Active Substance: METOCLOPRAMIDE
     Indication: GASTROOESOPHAGEAL REFLUX DISEASE
     Dosage: 40 MG, (10 MG, 4 IN 1 D)
     Route: 048
     Dates: start: 20160803
  27. ACYCLOVIR. [Concomitant]
     Active Substance: ACYCLOVIR
     Indication: INFECTION PROPHYLAXIS
     Dosage: 800 MG (400 MG, 2 IN 1 D)
     Route: 048
     Dates: start: 20160803

REACTIONS (13)
  - Lethargy [Not Recovered/Not Resolved]
  - Dysphagia [Recovering/Resolving]
  - Constipation [Unknown]
  - Urosepsis [Recovered/Resolved]
  - Dry mouth [Not Recovered/Not Resolved]
  - Decreased appetite [Unknown]
  - Blood creatinine increased [Recovered/Resolved]
  - Oral pain [Not Recovered/Not Resolved]
  - Anaemia [Not Recovered/Not Resolved]
  - Neuropathy peripheral [Not Recovered/Not Resolved]
  - External ear cellulitis [Recovering/Resolving]
  - Atrial fibrillation [Recovered/Resolved]
  - Oral candidiasis [Not Recovered/Not Resolved]

NARRATIVE: CASE EVENT DATE: 20160812
